FAERS Safety Report 24299815 (Version 1)
Quarter: 2024Q3

REPORT INFORMATION
  Report Type: Spontaneous
  Country: IN (occurrence: IN)
  Receive Date: 20240909
  Receipt Date: 20240909
  Transmission Date: 20241017
  Serious: Yes (Death, Life-Threatening, Hospitalization)
  Sender: PFIZER
  Company Number: IN-MLMSERVICE-20240827-PI173647-00218-1

PATIENT
  Age: 15 Year
  Sex: Male

DRUGS (4)
  1. CYTARABINE [Suspect]
     Active Substance: CYTARABINE
     Indication: Precursor B-lymphoblastic lymphoma
     Dosage: UNK
  2. METHOTREXATE [Suspect]
     Active Substance: METHOTREXATE
     Indication: Precursor B-lymphoblastic lymphoma
     Dosage: HIGH-DOSE
  3. ASPARAGINASE [Suspect]
     Active Substance: ASPARAGINASE
     Indication: Precursor B-lymphoblastic lymphoma
     Dosage: UNK
  4. DEXAMETHASONE [Suspect]
     Active Substance: DEXAMETHASONE
     Indication: Precursor B-lymphoblastic lymphoma
     Dosage: UNK

REACTIONS (8)
  - Staphylococcal infection [Fatal]
  - Septic shock [Fatal]
  - Klebsiella infection [Fatal]
  - Pseudomonas infection [Fatal]
  - Acute respiratory distress syndrome [Fatal]
  - Haemodynamic instability [Fatal]
  - Gastritis bacterial [Fatal]
  - Pneumonia pneumococcal [Fatal]
